FAERS Safety Report 7861940-4 (Version None)
Quarter: 2011Q4

REPORT INFORMATION
  Report Type: 
  Country: None (occurrence: None)
  Receive Date: 20111027
  Receipt Date: 20111019
  Transmission Date: 20120403
  Serious: Yes (Hospitalization, Other)
  Sender: FDA-Public Use
  Company Number: US-RB-025604-11

PATIENT
  Sex: Female

DRUGS (2)
  1. SUBUTEX [Suspect]
     Indication: DRUG DEPENDENCE
     Route: 060
     Dates: start: 20110411
  2. SUBOXONE [Suspect]
     Indication: DRUG DEPENDENCE
     Route: 060
     Dates: start: 20100201, end: 20110410

REACTIONS (4)
  - MATERNAL EXPOSURE DURING PREGNANCY [None]
  - PREMATURE DELIVERY [None]
  - PREMATURE RUPTURE OF MEMBRANES [None]
  - INFECTION [None]
